FAERS Safety Report 4402186-1 (Version None)
Quarter: 2004Q3

REPORT INFORMATION
  Report Type: 
  Country: None (occurrence: None)
  Receive Date: 20040716
  Receipt Date: 20040630
  Transmission Date: 20050211
  Serious: Yes (Hospitalization)
  Sender: FDA-Public Use
  Company Number: 2004-BP-05261YA (0)

PATIENT
  Age: 81 Year
  Sex: Male

DRUGS (9)
  1. TAMSULOSIN CAPSULES (NR) (TAMSULOSIN HYDROCHLORIDE) [Suspect]
     Indication: DYSURIA
     Dosage: 0.4 MG   PO
     Route: 048
     Dates: start: 20040626, end: 20040629
  2. FAMOTIDINE [Concomitant]
  3. SM POWDER (TAKA-DIASTASE/NATURAL AGENTS) [Concomitant]
  4. BUFFERIN [Concomitant]
  5. DILTIAZEM HYDROCHLORIDE [Concomitant]
  6. NICORANDIL [Concomitant]
  7. DIPYRIDAMOLE [Concomitant]
  8. ALOSENN [Concomitant]
  9. MAGNESIUM OXIDE [Concomitant]

REACTIONS (4)
  - ANGINA PECTORIS [None]
  - ATRIAL FIBRILLATION [None]
  - CONDITION AGGRAVATED [None]
  - DIZZINESS [None]
